FAERS Safety Report 5029187-7 (Version None)
Quarter: 2006Q2

REPORT INFORMATION
  Report Type: 
  Country: None (occurrence: None)
  Receive Date: 20060613
  Receipt Date: 20060602
  Transmission Date: 20061013
  Serious: Yes (Hospitalization)
  Sender: FDA-Public Use
  Company Number: HQWYE956905JUN06

PATIENT
  Age: 26 Year
  Sex: Female

DRUGS (1)
  1. RAPAMUNE                    (SIROLIMUS) [Suspect]
     Indication: PROPHYLAXIS AGAINST TRANSPLANT REJECTION
     Dosage: 10 MG 1X PER 1 DAY; ORAL
     Route: 048
     Dates: start: 20060523

REACTIONS (6)
  - HAEMODIALYSIS [None]
  - LUNG DISORDER [None]
  - PYREXIA [None]
  - RENAL SURGERY [None]
  - RENAL TUBULAR NECROSIS [None]
  - SPUTUM PURULENT [None]
